FAERS Safety Report 12215503 (Version 1)
Quarter: 2016Q1

REPORT INFORMATION
  Report Type: Spontaneous
  Country: JP (occurrence: JP)
  Receive Date: 20160328
  Receipt Date: 20160328
  Transmission Date: 20160526
  Serious: Yes (Death)
  Sender: FDA-Public Use
  Company Number: JP-TEVA-639356ISR

PATIENT
  Age: 62 Year
  Sex: Male

DRUGS (1)
  1. E-FEN BUCCAL [Suspect]
     Active Substance: FENTANYL CITRATE
     Indication: PRODUCT USED FOR UNKNOWN INDICATION
     Route: 002
     Dates: start: 2014

REACTIONS (2)
  - Gastric cancer [Fatal]
  - Stomatitis [Recovering/Resolving]

NARRATIVE: CASE EVENT DATE: 2014
